FAERS Safety Report 6822797-3 (Version None)
Quarter: 2010Q3

REPORT INFORMATION
  Report Type: 
  Country: None (occurrence: None)
  Receive Date: 20100708
  Receipt Date: 20100705
  Transmission Date: 20110219
  Serious: Yes (Other)
  Sender: FDA-Public Use
  Company Number: IT-ROCHE-713419

PATIENT
  Sex: Female

DRUGS (5)
  1. AVASTIN [Suspect]
     Indication: HEPATIC NEOPLASM MALIGNANT
     Dosage: FREQUENCY REPORTED AS CYCLES.
     Route: 042
     Dates: start: 20090918, end: 20091127
  2. CAMPTOSAR [Suspect]
     Indication: HEPATIC NEOPLASM MALIGNANT
     Dosage: FREQUENCY REPORTED AS CYCLES.
     Route: 042
     Dates: start: 20090918, end: 20091127
  3. LEDERFOLIN (CALCIUM LEVOFOLINATE) [Suspect]
     Indication: HEPATIC NEOPLASM MALIGNANT
     Dosage: FREQUENCY REPORTED AS CYCLES.
     Route: 042
     Dates: start: 20090918, end: 20091127
  4. FLUOROURACIL [Suspect]
     Indication: HEPATIC NEOPLASM MALIGNANT
     Dosage: FREQUENCY REPORTED AS CYCLES.
     Route: 042
     Dates: start: 20090918
  5. FLUOROURACIL [Suspect]
     Dosage: FREQUENCY REPORTED AS CYCLES.
     Route: 042
     Dates: end: 20091127

REACTIONS (3)
  - DEHYDRATION [None]
  - DYSURIA [None]
  - PYREXIA [None]
